FAERS Safety Report 25697907 (Version 1)
Quarter: 2025Q3

REPORT INFORMATION
  Report Type: Spontaneous
  Country: US (occurrence: US)
  Receive Date: 20250819
  Receipt Date: 20250819
  Transmission Date: 20251021
  Serious: Yes (Other)
  Sender: ROCHE
  Company Number: US-ROCHE-10000365090

PATIENT
  Age: 13 Year
  Sex: Male

DRUGS (1)
  1. XOLAIR [Suspect]
     Active Substance: OMALIZUMAB
     Indication: Food allergy
     Dosage: STRENGTH REPORTED AS300MG/2 ML
     Route: 058
     Dates: start: 202407

REACTIONS (4)
  - Anaphylactic reaction [Unknown]
  - Eye pruritus [Unknown]
  - Abdominal pain upper [Unknown]
  - Oropharyngeal pain [Unknown]

NARRATIVE: CASE EVENT DATE: 20250808
